FAERS Safety Report 17461212 (Version 1)
Quarter: 2020Q1

REPORT INFORMATION
  Report Type: Spontaneous
  Country: US (occurrence: US)
  Receive Date: 20200226
  Receipt Date: 20200226
  Transmission Date: 20200409
  Serious: Yes (Hospitalization, Other)
  Sender: FDA-Public Use
  Company Number: US-BRISTOL-MYERS SQUIBB COMPANY-BMS-2020-016495

PATIENT
  Sex: Female

DRUGS (1)
  1. COUMADIN [Suspect]
     Active Substance: WARFARIN SODIUM
     Indication: PRODUCT USED FOR UNKNOWN INDICATION
     Dosage: UNK
     Route: 065

REACTIONS (6)
  - Eye haemorrhage [Unknown]
  - Gastroenteritis salmonella [Unknown]
  - Cerebrovascular accident [Unknown]
  - Vaginal haemorrhage [Unknown]
  - Pulmonary embolism [Unknown]
  - Epistaxis [Unknown]

NARRATIVE: CASE EVENT DATE: 2014
